FAERS Safety Report 8278898-9 (Version None)
Quarter: 2012Q2

REPORT INFORMATION
  Report Type: 
  Country: None (occurrence: None)
  Receive Date: 20120412
  Receipt Date: 20111128
  Transmission Date: 20120825
  Serious: No
  Sender: FDA-Public Use
  Company Number: US-ASTRAZENECA-2007UW00581

PATIENT
  Age: 59 Year
  Sex: Female
  Weight: 59 kg

DRUGS (4)
  1. NEXIUM [Suspect]
     Route: 048
     Dates: start: 20081203
  2. NEXIUM [Suspect]
     Indication: GASTROOESOPHAGEAL REFLUX DISEASE
     Route: 048
  3. NEXIUM [Suspect]
     Route: 048
     Dates: start: 20081203
  4. NEXIUM [Suspect]
     Indication: DYSPEPSIA
     Route: 048

REACTIONS (6)
  - FLATULENCE [None]
  - TINNITUS [None]
  - WEIGHT DECREASED [None]
  - ORAL DISCOMFORT [None]
  - ALOPECIA [None]
  - EXPIRED DRUG ADMINISTERED [None]
